FAERS Safety Report 7379840-5 (Version None)
Quarter: 2011Q1

REPORT INFORMATION
  Report Type: 
  Country: None (occurrence: None)
  Receive Date: 20110329
  Receipt Date: 20110318
  Transmission Date: 20110831
  Serious: Yes (Hospitalization, Other)
  Sender: FDA-Public Use
  Company Number: JP-AMGEN-JPNCT2010009643

PATIENT
  Age: 62 Year
  Sex: Male
  Weight: 57 kg

DRUGS (17)
  1. LORFENAMIN [Concomitant]
     Dosage: UNK
     Route: 048
  2. ANTIHISTAMINES [Concomitant]
     Indication: PROPHYLAXIS
     Dosage: UNK
     Route: 065
  3. CETUXIMAB [Suspect]
     Indication: COLORECTAL CANCER
     Route: 041
     Dates: start: 20100401, end: 20100701
  4. OXINORM [Concomitant]
     Route: 048
  5. KYTRIL [Concomitant]
     Route: 042
  6. DECADRON [Concomitant]
     Dosage: UNK
     Route: 042
  7. ZOPICOOL [Concomitant]
     Dosage: UNK
     Route: 048
  8. MYSLEE [Concomitant]
     Dosage: UNK
     Route: 048
  9. FLUOROURACIL [Suspect]
     Indication: COLORECTAL CANCER
     Route: 041
     Dates: start: 20100729
  10. VOLTAREN [Concomitant]
     Route: 048
  11. PYDOXAL [Concomitant]
     Dosage: UNK
     Route: 048
  12. PANITUMUMAB [Suspect]
     Indication: COLORECTAL CANCER
     Dosage: 5.3 MG/KG, Q2WK
     Route: 041
     Dates: start: 20100729
  13. CORTICOSTEROIDS [Concomitant]
     Indication: PROPHYLAXIS
     Dosage: UNK
     Route: 065
  14. PARIET [Concomitant]
     Dosage: UNK
     Route: 048
  15. CALCIUM LEVOFOLINATE [Suspect]
     Indication: COLORECTAL CANCER
     Route: 041
     Dates: start: 20100729
  16. IRINOTECAN HYDROCHLORIDE [Suspect]
     Indication: COLORECTAL CANCER
     Route: 041
     Dates: start: 20100729
  17. OXYCONTIN [Concomitant]
     Dosage: UNK
     Route: 048

REACTIONS (7)
  - DEHYDRATION [None]
  - DERMATITIS ACNEIFORM [None]
  - ANAEMIA [None]
  - BLOOD SODIUM INCREASED [None]
  - ABDOMINAL ABSCESS [None]
  - POSTOPERATIVE WOUND INFECTION [None]
  - HEPATIC FUNCTION ABNORMAL [None]
